FAERS Safety Report 5105755-9 (Version None)
Quarter: 2006Q3

REPORT INFORMATION
  Report Type: 
  Country: None (occurrence: None)
  Receive Date: 20060915
  Receipt Date: 20060818
  Transmission Date: 20061208
  Serious: Yes (Hospitalization, Other)
  Sender: FDA-Public Use
  Company Number: US-BRISTOL-MYERS SQUIBB COMPANY-13483169

PATIENT
  Age: 36 Year
  Sex: Female

DRUGS (3)
  1. ORENCIA [Suspect]
     Indication: RHEUMATOID ARTHRITIS
     Dosage: ADDITIOANL LOT #'S LOT # MTX 533 PI EXP. OCT-2007 LOT # MTJ 521 AI
     Route: 042
     Dates: start: 20060508
  2. SYNTHROID [Concomitant]
  3. MULTI-VITAMIN [Concomitant]

REACTIONS (2)
  - PERICARDITIS CONSTRICTIVE [None]
  - PLEURAL EFFUSION [None]
